FAERS Safety Report 13802256 (Version 3)
Quarter: 2017Q4

REPORT INFORMATION
  Report Type: Spontaneous
  Country: US (occurrence: US)
  Receive Date: 20170728
  Receipt Date: 20171011
  Transmission Date: 20180320
  Serious: Yes (Other)
  Sender: FDA-Public Use
  Company Number: US-EMD SERONO-8171070

PATIENT
  Age: 70 Year
  Sex: Male

DRUGS (2)
  1. BAVENCIO [Suspect]
     Active Substance: AVELUMAB
     Indication: NEUROENDOCRINE CARCINOMA OF THE SKIN
     Route: 042
     Dates: start: 20170419
  2. BENADRYL [Concomitant]
     Active Substance: DIPHENHYDRAMINE HYDROCHLORIDE
     Indication: PREMEDICATION

REACTIONS (5)
  - Neutropenia [Not Recovered/Not Resolved]
  - Metastases to lymph nodes [Unknown]
  - Thrombocytopenia [Not Recovered/Not Resolved]
  - Dizziness [Recovering/Resolving]
  - White blood cell count decreased [Not Recovered/Not Resolved]

NARRATIVE: CASE EVENT DATE: 201706
